FAERS Safety Report 15469214 (Version 1)
Quarter: 2018Q4

REPORT INFORMATION
  Report Type: Spontaneous
  Country: US (occurrence: US)
  Receive Date: 20181005
  Receipt Date: 20181005
  Transmission Date: 20190205
  Serious: Yes (Hospitalization, Other)
  Sender: FDA-Public Use
  Company Number: US-SA-2017SA010729

PATIENT
  Age: 11 Year
  Sex: Male
  Weight: 27 kg

DRUGS (13)
  1. ACETAMINOPHEN. [Concomitant]
     Active Substance: ACETAMINOPHEN
     Dosage: 200 MG,UNK
     Route: 048
     Dates: start: 20161005
  2. ONDANSETRON [Concomitant]
     Active Substance: ONDANSETRON
     Indication: PREMEDICATION
     Dosage: 4 MG,UNK
     Route: 042
     Dates: start: 20161005
  3. INCRELEX [Concomitant]
     Active Substance: MECASERMIN
     Dosage: 40 MG,BID
     Dates: start: 20161005
  4. EPINEPHRINE. [Concomitant]
     Active Substance: EPINEPHRINE
     Indication: ANAPHYLACTIC REACTION
     Dosage: 0.15 MG, UNK
     Route: 030
     Dates: start: 20180730
  5. ALDURAZYME [Suspect]
     Active Substance: LARONIDASE
     Dosage: 0.45 UNK
     Route: 041
  6. DIPHENHYDRAMINE. [Concomitant]
     Active Substance: DIPHENHYDRAMINE
     Dosage: 12.5 MG
     Route: 048
     Dates: start: 20161005
  7. NORMAL SALINE [Concomitant]
     Active Substance: SODIUM CHLORIDE
     Dosage: .9 %,UNK
     Route: 042
     Dates: start: 20180730
  8. EPIPEN JR [Concomitant]
     Active Substance: EPINEPHRINE
     Indication: ANAPHYLACTIC REACTION
     Dosage: .15 MG,UNK
     Route: 030
     Dates: start: 20161005
  9. DIPHENHYDRAMINE. [Concomitant]
     Active Substance: DIPHENHYDRAMINE
     Dosage: 2.5 DF,UNK
     Route: 048
     Dates: start: 20161215
  10. HEPARIN [Concomitant]
     Active Substance: HEPARIN SODIUM
     Dosage: 100 UN/ML
     Route: 042
     Dates: start: 20161005
  11. ALDURAZYME [Suspect]
     Active Substance: LARONIDASE
     Indication: MUCOPOLYSACCHARIDOSIS
     Dosage: .55 MG/KG,QW
     Route: 041
     Dates: start: 20160621
  12. SOLU-CORTEF [Concomitant]
     Active Substance: HYDROCORTISONE SODIUM SUCCINATE
     Indication: ANAPHYLACTIC REACTION
     Dosage: 40 MG,PRN
     Route: 042
     Dates: start: 20161215
  13. SOLU-CORTEF [Concomitant]
     Active Substance: HYDROCORTISONE SODIUM SUCCINATE
     Dosage: 50 MG, UNK
     Route: 042
     Dates: start: 20161005

REACTIONS (5)
  - Clostridium difficile infection [Unknown]
  - Spinal fusion surgery [Unknown]
  - Gastric ulcer [Unknown]
  - Vomiting [Unknown]
  - Treatment noncompliance [Unknown]

NARRATIVE: CASE EVENT DATE: 20180817
